FAERS Safety Report 17800448 (Version 3)
Quarter: 2020Q2

REPORT INFORMATION
  Report Type: Spontaneous
  Country: CN (occurrence: CN)
  Receive Date: 20200518
  Receipt Date: 20200520
  Transmission Date: 20200714
  Serious: Yes (Hospitalization)
  Sender: FDA-Public Use
  Company Number: CN-CELGENEUS-CHN-20200504320

PATIENT
  Age: 63 Year
  Sex: Male

DRUGS (3)
  1. STERILE WATER [Concomitant]
     Active Substance: WATER
     Indication: CHRONIC MYELOID LEUKAEMIA
     Dosage: 4 MILLILITER
     Route: 058
     Dates: start: 20200304, end: 20200311
  2. VIDAZA [Suspect]
     Active Substance: AZACITIDINE
     Indication: CHRONIC MYELOID LEUKAEMIA
     Dosage: 100 MILLIGRAM
     Route: 058
     Dates: start: 20200304, end: 20200311
  3. HYDROXYUREA. [Suspect]
     Active Substance: HYDROXYUREA
     Indication: CHRONIC MYELOID LEUKAEMIA
     Dosage: .5 GRAM
     Route: 048
     Dates: start: 20200304, end: 20200305

REACTIONS (3)
  - Leukopenia [Recovering/Resolving]
  - Hepatic function abnormal [Recovering/Resolving]
  - Thrombocytopenia [Recovering/Resolving]

NARRATIVE: CASE EVENT DATE: 20200307
